FAERS Safety Report 4348656-6 (Version None)
Quarter: 2004Q2

REPORT INFORMATION
  Report Type: 
  Country: None (occurrence: None)
  Receive Date: 20040423
  Receipt Date: 20040414
  Transmission Date: 20050107
  Serious: Yes (Other)
  Sender: FDA-Public Use
  Company Number: NL-JNJFOC-20040403021

PATIENT
  Age: 40 Year
  Sex: Female

DRUGS (5)
  1. REMICADE [Suspect]
     Indication: MYOSITIS
     Dosage: 820 MG, 1 IN 1 DAY , INTRAVENOUS : 829 MG, 1 IN 1 DAY, INTRAVENOUS ; 830 MG, 1 IN 1 DAY, INTRAVENOUS
     Route: 042
     Dates: start: 20031231, end: 20031231
  2. REMICADE [Suspect]
     Indication: MYOSITIS
     Dosage: 820 MG, 1 IN 1 DAY , INTRAVENOUS : 829 MG, 1 IN 1 DAY, INTRAVENOUS ; 830 MG, 1 IN 1 DAY, INTRAVENOUS
     Route: 042
     Dates: start: 20040114, end: 20040114
  3. REMICADE [Suspect]
     Indication: MYOSITIS
     Dosage: 820 MG, 1 IN 1 DAY , INTRAVENOUS : 829 MG, 1 IN 1 DAY, INTRAVENOUS ; 830 MG, 1 IN 1 DAY, INTRAVENOUS
     Route: 042
     Dates: start: 20040211, end: 20040211
  4. REMICADE [Suspect]
     Indication: MYOSITIS
     Dosage: 820 MG, 1 IN 1 DAY , INTRAVENOUS : 829 MG, 1 IN 1 DAY, INTRAVENOUS ; 830 MG, 1 IN 1 DAY, INTRAVENOUS
     Route: 042
     Dates: start: 20040407, end: 20040407
  5. INSULIN [Concomitant]

REACTIONS (4)
  - DRUG HYPERSENSITIVITY [None]
  - HYPOTENSION [None]
  - MALAISE [None]
  - TACHYCARDIA [None]
